FAERS Safety Report 13710614 (Version 1)
Quarter: 2017Q3

REPORT INFORMATION
  Report Type: Spontaneous
  Country: US (occurrence: US)
  Receive Date: 20170702
  Receipt Date: 20170702
  Transmission Date: 20171127
  Serious: Yes (Hospitalization, Other)
  Sender: FDA-Public Use
  Company Number: None

PATIENT
  Age: 41 Year
  Sex: Female
  Weight: 96.75 kg

DRUGS (3)
  1. CLYNDAMYCIN [Suspect]
     Active Substance: CLINDAMYCIN
     Indication: TOOTHACHE
     Route: 048
     Dates: start: 20170327, end: 20170329
  2. ALIEVE [Concomitant]
  3. HUMIRA [Concomitant]
     Active Substance: ADALIMUMAB

REACTIONS (2)
  - Clostridium difficile infection [None]
  - Abdominal discomfort [None]

NARRATIVE: CASE EVENT DATE: 20170327
